FAERS Safety Report 8322534-X (Version None)
Quarter: 2012Q2

REPORT INFORMATION
  Report Type: 
  Country: None (occurrence: None)
  Receive Date: 20120430
  Receipt Date: 20120420
  Transmission Date: 20120825
  Serious: Yes (Hospitalization)
  Sender: FDA-Public Use
  Company Number: DE-ABBOTT-12P-062-0928027-00

PATIENT
  Sex: Female

DRUGS (3)
  1. PREDNISONE [Concomitant]
     Indication: JUVENILE ARTHRITIS
     Route: 048
  2. ARAVA [Suspect]
     Indication: JUVENILE ARTHRITIS
  3. HUMIRA [Suspect]
     Indication: JUVENILE ARTHRITIS
     Route: 058
     Dates: start: 20110615

REACTIONS (3)
  - LYMPHOCYTE COUNT ABNORMAL [None]
  - WHITE BLOOD CELL DISORDER [None]
  - BLOOD PRESSURE INCREASED [None]
